FAERS Safety Report 7240776-1 (Version None)
Quarter: 2011Q1

REPORT INFORMATION
  Report Type: 
  Country: None (occurrence: None)
  Receive Date: 20110120
  Receipt Date: 20110120
  Transmission Date: 20110831
  Serious: No
  Sender: FDA-Public Use
  Company Number: None

PATIENT
  Age: 76 Year
  Sex: Male
  Weight: 82.1011 kg

DRUGS (1)
  1. LEVAQUIN [Suspect]
     Indication: INFECTION
     Dosage: ONE DAILY
     Dates: start: 20110104, end: 20110108

REACTIONS (3)
  - JOINT RANGE OF MOTION DECREASED [None]
  - SWELLING [None]
  - TENDON PAIN [None]
